FAERS Safety Report 15317297 (Version 1)
Quarter: 2018Q3

REPORT INFORMATION
  Report Type: Spontaneous
  Country: US (occurrence: US)
  Receive Date: 20180824
  Receipt Date: 20180824
  Transmission Date: 20181010
  Serious: No
  Sender: FDA-Public Use
  Company Number: US-BEH-2018094160

PATIENT
  Sex: Female
  Weight: 77.98 kg

DRUGS (13)
  1. HAEGARDA [Suspect]
     Active Substance: HUMAN C1-ESTERASE INHIBITOR
     Indication: PROPHYLAXIS
  2. HYDROCODONE BITARTRATE AND ACETAMINOPHEN [Concomitant]
     Active Substance: ACETAMINOPHEN\HYDROCODONE BITARTRATE
  3. FISH OIL [Concomitant]
     Active Substance: FISH OIL
  4. OXANDROLONE. [Concomitant]
     Active Substance: OXANDROLONE
  5. SUMATRIPTAN SUCCINATE. [Concomitant]
     Active Substance: SUMATRIPTAN SUCCINATE
  6. HAEGARDA [Suspect]
     Active Substance: HUMAN C1-ESTERASE INHIBITOR
     Indication: HEREDITARY ANGIOEDEMA
     Dosage: 4000 IU, BIW
     Route: 058
     Dates: start: 20180712
  7. LOVASTATIN. [Concomitant]
     Active Substance: LOVASTATIN
  8. EPINEPHRINE. [Concomitant]
     Active Substance: EPINEPHRINE
  9. DILTIAZEM. [Concomitant]
     Active Substance: DILTIAZEM
  10. ATENOLOL. [Concomitant]
     Active Substance: ATENOLOL
  11. VITAMIN B12 [Concomitant]
     Active Substance: CYANOCOBALAMIN
  12. MAGNESIUM [Concomitant]
     Active Substance: MAGNESIUM
  13. VITAMIN D                          /00107901/ [Concomitant]
     Active Substance: ERGOCALCIFEROL

REACTIONS (1)
  - Injection site pain [Unknown]
